FAERS Safety Report 4377090-8 (Version None)
Quarter: 2004Q2

REPORT INFORMATION
  Report Type: 
  Country: None (occurrence: None)
  Receive Date: 20040608
  Receipt Date: 20040524
  Transmission Date: 20050107
  Serious: Yes (Hospitalization)
  Sender: FDA-Public Use
  Company Number: ES-JNJFOC-20040501177

PATIENT
  Age: 35 Year
  Sex: Male
  Weight: 90 kg

DRUGS (4)
  1. REMICADE [Suspect]
     Indication: CROHN'S DISEASE
     Dosage: 5 MG/KG, 1 IN 1 DAY, INTRAVENOUS
     Route: 042
     Dates: start: 20040426, end: 20040426
  2. AZATHIOPRINE [Concomitant]
  3. CORTICOSTEROIDS NOS (CORTICOSTEROID NOS) [Concomitant]
  4. ISONIAZID [Concomitant]

REACTIONS (10)
  - ASPIRATION [None]
  - BLOOD GLUCOSE INCREASED [None]
  - COLITIS [None]
  - CROHN'S DISEASE [None]
  - DEPRESSED LEVEL OF CONSCIOUSNESS [None]
  - ENDOTRACHEAL INTUBATION COMPLICATION [None]
  - GASTROENTERITIS [None]
  - GENERAL PHYSICAL HEALTH DETERIORATION [None]
  - HYPOVOLAEMIA [None]
  - SEPTIC SHOCK [None]
